FAERS Safety Report 19381957 (Version 1)
Quarter: 2021Q2

REPORT INFORMATION
  Report Type: Spontaneous
  Country: US (occurrence: US)
  Receive Date: 20210607
  Receipt Date: 20210607
  Transmission Date: 20210717
  Serious: Yes (Other)
  Sender: FDA-Public Use
  Company Number: US-CIPLA LTD.-2021US03870

PATIENT

DRUGS (1)
  1. NADOLOL. [Suspect]
     Active Substance: NADOLOL
     Indication: VENTRICULAR TACHYCARDIA
     Dosage: 40 MILLIGRAM DAILY, FOR 3 YEARS
     Route: 065

REACTIONS (5)
  - Oligohydramnios [Unknown]
  - Exposure during pregnancy [Unknown]
  - Foetal growth restriction [Unknown]
  - Premature delivery [Unknown]
  - Small size placenta [Unknown]
